FAERS Safety Report 10230135 (Version 3)
Quarter: 2014Q4

REPORT INFORMATION
  Report Type: Spontaneous
  Country: JP (occurrence: JP)
  Receive Date: 20140611
  Receipt Date: 20141124
  Transmission Date: 20150528
  Serious: Yes (Hospitalization)
  Sender: FDA-Public Use
  Company Number: JP-ASTELLAS-2014US006660

PATIENT
  Age: 67 Year
  Sex: Female

DRUGS (9)
  1. CELECOXIB. [Concomitant]
     Active Substance: CELECOXIB
     Indication: ARTHRALGIA
     Route: 048
     Dates: start: 20140603
  2. ERLOTINIB [Suspect]
     Active Substance: ERLOTINIB
     Dosage: 100 MG,  EVERY OTHER DAY
     Route: 048
     Dates: start: 20140710, end: 20140716
  3. TARIVID                            /00731801/ [Concomitant]
     Active Substance: OFLOXACIN
     Indication: OTITIS MEDIA CHRONIC
     Dosage: LEFT EAR, FOR OTIC USE, TWICE DAILY
     Route: 001
     Dates: start: 20140609
  4. MUCOSTA [Concomitant]
     Active Substance: REBAMIPIDE
     Indication: ARTHRALGIA
     Route: 048
     Dates: start: 20140603
  5. CRESTOR [Concomitant]
     Active Substance: ROSUVASTATIN CALCIUM
     Indication: DYSLIPIDAEMIA
     Route: 048
  6. POPIYODON [Concomitant]
     Indication: OTITIS MEDIA CHRONIC
     Dosage: LEFT EAR, TWICE DAILY
     Route: 001
     Dates: start: 20140613
  7. ERLOTINIB [Suspect]
     Active Substance: ERLOTINIB
     Route: 048
     Dates: start: 20140616, end: 20140702
  8. ERLOTINIB [Suspect]
     Active Substance: ERLOTINIB
     Indication: LUNG ADENOCARCINOMA
     Dosage: UNK, UNKNOWN FREQ.
     Route: 048
     Dates: start: 20140508, end: 20140605
  9. MINOMYCIN [Suspect]
     Active Substance: MINOCYCLINE HYDROCHLORIDE
     Indication: PRURITUS
     Route: 048
     Dates: start: 20140603, end: 20140605

REACTIONS (11)
  - Dysgeusia [Recovering/Resolving]
  - Pyrexia [Unknown]
  - Decreased appetite [Unknown]
  - Dizziness [Unknown]
  - Paraesthesia [Recovered/Resolved]
  - Paraesthesia oral [Recovered/Resolved]
  - Rash [Recovering/Resolving]
  - Acne [Recovering/Resolving]
  - Nausea [Recovering/Resolving]
  - Rash [Unknown]
  - Rash [Unknown]

NARRATIVE: CASE EVENT DATE: 20140514
